FAERS Safety Report 10741089 (Version 1)
Quarter: 2015Q1

REPORT INFORMATION
  Report Type: Spontaneous
  Country: NL (occurrence: NL)
  Receive Date: 20150127
  Receipt Date: 20150127
  Transmission Date: 20150721
  Serious: Yes (Hospitalization)
  Sender: FDA-Public Use
  Company Number: NL-UCBSA-2015001400

PATIENT
  Sex: Female

DRUGS (10)
  1. DAGRAVIT D-KALK [Concomitant]
     Indication: PRODUCT USED FOR UNKNOWN INDICATION
     Dosage: 10 DROPS, ONCE DAILY (QD)
     Route: 048
     Dates: start: 2012
  2. FENOBARBITAL [Concomitant]
     Active Substance: PHENOBARBITAL
     Indication: PRODUCT USED FOR UNKNOWN INDICATION
     Dosage: 4 MG/ML, 2X/DAY (BID)
     Route: 048
     Dates: start: 2012
  3. DIAZEPAM. [Concomitant]
     Active Substance: DIAZEPAM
     Indication: PRODUCT USED FOR UNKNOWN INDICATION
     Dosage: 2 MG/ML, AS NEEDED (PRN)
     Dates: start: 2012
  4. MELATONIN [Concomitant]
     Active Substance: MELATONIN
     Indication: PRODUCT USED FOR UNKNOWN INDICATION
     Dosage: 2 MG, ONCE DAILY (QD)
     Dates: start: 2012
  5. FRISIUM [Concomitant]
     Active Substance: CLOBAZAM
     Indication: PRODUCT USED FOR UNKNOWN INDICATION
     Dosage: 7.5 UNIT, ONCE DAILY (QD)
     Dates: start: 2012
  6. MACROGOL 4000 [Concomitant]
     Active Substance: POLYETHYLENE GLYCOL 4000
     Indication: PRODUCT USED FOR UNKNOWN INDICATION
     Dosage: 10 G, ONCE DAILY (QD)
     Route: 048
     Dates: start: 2012
  7. MICROLAX [Concomitant]
     Indication: PRODUCT USED FOR UNKNOWN INDICATION
     Dosage: 5 ML, AS NEEDED (PRN)
     Dates: start: 2012
  8. KEPPRA [Suspect]
     Active Substance: LEVETIRACETAM
     Indication: EPILEPSY
     Dosage: 1.5 ML, 2X/DAY (BID)
     Route: 048
     Dates: start: 2012
  9. TEGRETOL [Interacting]
     Active Substance: CARBAMAZEPINE
     Indication: EPILEPSY
     Dosage: 7.5 ML, 2X/DAY (BID) SUSPENSION AND EFFERVESCENT GRANULES FOR ORAL SUSPENSION
     Dates: start: 2012
  10. RIVOTRIL [Concomitant]
     Active Substance: CLONAZEPAM
     Indication: PRODUCT USED FOR UNKNOWN INDICATION
     Dosage: 10-12 DROPS PER DAY
     Route: 048
     Dates: start: 2012

REACTIONS (2)
  - Drug interaction [Unknown]
  - Gingival swelling [Recovered/Resolved]

NARRATIVE: CASE EVENT DATE: 2012
